FAERS Safety Report 18694975 (Version 1)
Quarter: 2021Q1

REPORT INFORMATION
  Report Type: Spontaneous
  Country: US (occurrence: US)
  Receive Date: 20210102
  Receipt Date: 20210102
  Transmission Date: 20210419
  Serious: Yes (Other)
  Sender: FDA-Public Use
  Company Number: None

PATIENT
  Age: 8 Year
  Sex: Female
  Weight: 32.4 kg

DRUGS (5)
  1. IBUPROFEN. [Concomitant]
     Active Substance: IBUPROFEN
  2. MIRALAX [Suspect]
     Active Substance: POLYETHYLENE GLYCOL 3350
     Indication: CONSTIPATION
     Dosage: ?          QUANTITY:17 GRAMS;?
     Route: 048
     Dates: start: 20201212, end: 20201229
  3. SMARTY PANTS CHILDRENS VITAMINS [Concomitant]
  4. MILK OF MAGNESIA [Concomitant]
     Active Substance: MAGNESIUM HYDROXIDE
  5. PROBIOTICS [Concomitant]
     Active Substance: PROBIOTICS NOS

REACTIONS (2)
  - Hallucination, visual [None]
  - Fear [None]

NARRATIVE: CASE EVENT DATE: 20201229
